FAERS Safety Report 7582724-0 (Version None)
Quarter: 2011Q2

REPORT INFORMATION
  Report Type: 
  Country: None (occurrence: None)
  Receive Date: 20110623
  Receipt Date: 20110608
  Transmission Date: 20111010
  Serious: Yes (Hospitalization)
  Sender: FDA-Public Use
  Company Number: CIP11001397

PATIENT
  Age: 77 Year
  Sex: Female

DRUGS (4)
  1. NITROFURANTOIN (NITROFURANTOIN, MACROCRYSTALS) CAPSULE, 100MG [Suspect]
     Indication: CYSTITIS NONINFECTIVE
     Dosage: 100 MG 4 TIMES DAILY, ORAL
     Route: 048
  2. ACENOCOUMAROL (ACENOCOUMAROL) [Suspect]
     Dosage: /DOSAGE / REGIMEN;
  3. INSULIN [Concomitant]
  4. AMITRIPTYLINE HCL [Concomitant]

REACTIONS (2)
  - PERIPHERAL COLDNESS [None]
  - CUTANEOUS VASCULITIS [None]
